FAERS Safety Report 5520376-1 (Version None)
Quarter: 2007Q4

REPORT INFORMATION
  Report Type: 
  Country: None (occurrence: None)
  Receive Date: 20071119
  Receipt Date: 20071114
  Transmission Date: 20080405
  Serious: Yes (Hospitalization)
  Sender: FDA-Public Use
  Company Number: PHEH2007US14852

PATIENT
  Age: 82 Year
  Sex: Male

DRUGS (3)
  1. TEKTURNA [Suspect]
     Dosage: 300 MG, QD
  2. DIURETICS [Concomitant]
  3. ANGIOTENSIN II ANTAGONISTS [Concomitant]

REACTIONS (7)
  - AMNESIA [None]
  - BLOOD CREATININE INCREASED [None]
  - BLOOD UREA INCREASED [None]
  - FALL [None]
  - LOSS OF CONSCIOUSNESS [None]
  - MENTAL STATUS CHANGES [None]
  - RENAL FAILURE ACUTE [None]
